FAERS Safety Report 12202268 (Version 1)
Quarter: 2016Q1

REPORT INFORMATION
  Report Type: Spontaneous
  Country: GB (occurrence: GB)
  Receive Date: 20160322
  Receipt Date: 20160322
  Transmission Date: 20160526
  Serious: Yes (Other)
  Sender: FDA-Public Use
  Company Number: GB-B. BRAUN MEDICAL INC.-1049446

PATIENT
  Age: 86 Year
  Sex: Female

DRUGS (2)
  1. DEXTROSE INJECTIONS USP 0264-7510-00 0264-7510-20 [Suspect]
     Active Substance: DEXTROSE
     Dates: start: 20150421
  2. HUMAN ACTRAPID [Suspect]
     Active Substance: INSULIN HUMAN
     Dates: start: 20150421

REACTIONS (3)
  - Overdose [None]
  - Hypoglycaemia [None]
  - No therapeutic response [None]
